FAERS Safety Report 14633686 (Version 1)
Quarter: 2018Q1

REPORT INFORMATION
  Report Type: Report from Study
  Country: GB (occurrence: GB)
  Receive Date: 20180314
  Receipt Date: 20180314
  Transmission Date: 20180509
  Serious: Yes (Death)
  Sender: FDA-Public Use
  Company Number: GB-ROCHE-1830669

PATIENT
  Sex: Male

DRUGS (1)
  1. RITUXIMAB. [Suspect]
     Active Substance: RITUXIMAB
     Indication: RHEUMATOID ARTHRITIS
     Route: 042
     Dates: start: 20110713, end: 20150311

REACTIONS (4)
  - Immunosuppression [Fatal]
  - Parkinson^s disease [Fatal]
  - Hepatitis E [Fatal]
  - Hepatic failure [Fatal]
